FAERS Safety Report 4462232-6 (Version None)
Quarter: 2004Q3

REPORT INFORMATION
  Report Type: 
  Country: None (occurrence: None)
  Receive Date: 20040929
  Receipt Date: 20040917
  Transmission Date: 20050211
  Serious: Yes (Hospitalization)
  Sender: FDA-Public Use
  Company Number: FR-BRISTOL-MYERS SQUIBB COMPANY-12706255

PATIENT
  Sex: Male

DRUGS (2)
  1. REYATAZ [Suspect]
     Indication: HIV INFECTION
     Route: 048
  2. NORVIR [Concomitant]

REACTIONS (3)
  - HYPERBILIRUBINAEMIA [None]
  - JAUNDICE [None]
  - VARICES OESOPHAGEAL [None]
